FAERS Safety Report 11038008 (Version 1)
Quarter: 2015Q2

REPORT INFORMATION
  Report Type: Report from Study
  Country: VE (occurrence: VE)
  Receive Date: 20150416
  Receipt Date: 20150416
  Transmission Date: 20150821
  Serious: Yes (Death)
  Sender: FDA-Public Use
  Company Number: VE-SA-2015SA046896

PATIENT
  Age: 56 Year
  Sex: Male

DRUGS (1)
  1. LANTUS [Suspect]
     Active Substance: INSULIN GLARGINE
     Indication: DIABETES MELLITUS
     Route: 058
     Dates: start: 201301, end: 20130820

REACTIONS (4)
  - Metastases to lung [Fatal]
  - Respiratory arrest [Fatal]
  - Renal cancer metastatic [Fatal]
  - Pleural effusion [Fatal]

NARRATIVE: CASE EVENT DATE: 201306
